FAERS Safety Report 12296611 (Version 1)
Quarter: 2016Q2

REPORT INFORMATION
  Report Type: Report from Study
  Country: US (occurrence: US)
  Receive Date: 20160422
  Receipt Date: 20160422
  Transmission Date: 20160815
  Serious: No
  Sender: FDA-Public Use
  Company Number: US-AMGEN-USASL2016021449

PATIENT
  Age: 90 Year
  Sex: Male

DRUGS (1)
  1. REPATHA [Suspect]
     Active Substance: EVOLOCUMAB
     Indication: PRODUCT USED FOR UNKNOWN INDICATION
     Dosage: UNK
     Route: 065

REACTIONS (6)
  - Rhinorrhoea [Unknown]
  - Myalgia [Unknown]
  - Sneezing [Unknown]
  - Pain [Unknown]
  - Pruritus [Unknown]
  - Joint swelling [Unknown]
